FAERS Safety Report 16826825 (Version 1)
Quarter: 2019Q3

REPORT INFORMATION
  Report Type: Spontaneous
  Country: US (occurrence: US)
  Receive Date: 20190919
  Receipt Date: 20190919
  Transmission Date: 20191005
  Serious: Yes (Hospitalization)
  Sender: FDA-Public Use
  Company Number: US-SUN PHARMACEUTICAL INDUSTRIES LTD-2019R1-220886

PATIENT
  Age: 53 Year
  Sex: Male

DRUGS (1)
  1. METHADONE [Suspect]
     Active Substance: METHADONE HYDROCHLORIDE
     Indication: DRUG USE DISORDER
     Dosage: DECREASED FROM 100MG TO 60MG DAILY (INGESTED AN UNMARKED TABLET)
     Route: 048

REACTIONS (2)
  - Mental status changes [Recovering/Resolving]
  - Hypoglycaemia [Not Recovered/Not Resolved]
